FAERS Safety Report 4764314-8 (Version None)
Quarter: 2005Q3

REPORT INFORMATION
  Report Type: 
  Country: None (occurrence: None)
  Receive Date: 20050907
  Receipt Date: 20050907
  Transmission Date: 20060218
  Serious: Yes (Other)
  Sender: FDA-Public Use
  Company Number: None

PATIENT
  Age: 70 Year
  Sex: Female
  Weight: 60.782 kg

DRUGS (8)
  1. CRESTOR [Suspect]
     Indication: BLOOD CHOLESTEROL INCREASED
     Dosage: 10 MG ONCE DAILY;  5 MG ONCE DAILY
     Dates: start: 20041101, end: 20050101
  2. CRESTOR [Suspect]
     Indication: BLOOD CHOLESTEROL INCREASED
     Dosage: 10 MG ONCE DAILY;  5 MG ONCE DAILY
     Dates: start: 20050101, end: 20050225
  3. TIAZAC [Concomitant]
  4. NORVASC [Concomitant]
  5. AMILORIDE HCL [Concomitant]
  6. HYTRIN [Concomitant]
  7. ASPIRIN [Concomitant]
  8. FISH OIL SUPPLEMENT [Concomitant]

REACTIONS (2)
  - HEADACHE [None]
  - SELF-MEDICATION [None]
